FAERS Safety Report 4494254-3 (Version None)
Quarter: 2004Q4

REPORT INFORMATION
  Report Type: 
  Country: None (occurrence: None)
  Receive Date: 20041027
  Receipt Date: 20041014
  Transmission Date: 20050328
  Serious: Yes (Other)
  Sender: FDA-Public Use
  Company Number: 2004-03002

PATIENT
  Age: 51 Year
  Sex: Female

DRUGS (1)
  1. TUBERSOL [Suspect]
     Indication: TUBERCULIN TEST
     Dates: start: 20040910

REACTIONS (2)
  - ANAPHYLACTOID REACTION [None]
  - LOSS OF CONSCIOUSNESS [None]
